FAERS Safety Report 14446245 (Version 1)
Quarter: 2018Q1

REPORT INFORMATION
  Report Type: Report from Study
  Country: ES (occurrence: ES)
  Receive Date: 20180126
  Receipt Date: 20180126
  Transmission Date: 20180509
  Serious: Yes (Life-Threatening, Hospitalization)
  Sender: FDA-Public Use
  Company Number: ES-CONCORDIA PHARMACEUTICALS INC.-E2B_00009561

PATIENT
  Age: 53 Year
  Sex: Male

DRUGS (6)
  1. DIGOXIN. [Suspect]
     Active Substance: DIGOXIN
     Indication: ATRIAL FIBRILLATION
     Route: 048
     Dates: start: 200905
  2. ACENOCUMAROL (220A) [Concomitant]
     Indication: ATRIAL FIBRILLATION
     Route: 048
     Dates: start: 200904
  3. ATENOLOL (356A) [Interacting]
     Active Substance: ATENOLOL
     Indication: ATRIAL FIBRILLATION
     Route: 048
     Dates: start: 201305, end: 20160216
  4. VERAPAMILO HIDROCLORURO (3203CH) [Interacting]
     Active Substance: VERAPAMIL HYDROCHLORIDE
     Indication: ATRIAL FIBRILLATION
     Route: 048
     Dates: start: 20151118, end: 20160216
  5. FUROSEMIDA (1615A) [Concomitant]
     Active Substance: FUROSEMIDE
     Indication: CARDIAC FAILURE
     Route: 048
     Dates: start: 201305
  6. METFORMINA (1359A) [Concomitant]
     Indication: TYPE 2 DIABETES MELLITUS
     Route: 048
     Dates: start: 2009, end: 20160216

REACTIONS (2)
  - Cardiogenic shock [Recovered/Resolved]
  - Medication error [Unknown]

NARRATIVE: CASE EVENT DATE: 20151118
